FAERS Safety Report 9109860 (Version 1)
Quarter: 2013Q1

REPORT INFORMATION
  Report Type: Report from Study
  Country: CA (occurrence: CA)
  Receive Date: 20130222
  Receipt Date: 20130222
  Transmission Date: 20140127
  Serious: Yes (Other)
  Sender: FDA-Public Use
  Company Number: CA-JNJFOC-20130209396

PATIENT
  Age: 53 Year
  Sex: Male
  Weight: 83.3 kg

DRUGS (6)
  1. REMICADE [Suspect]
     Indication: ANKYLOSING SPONDYLITIS
     Dosage: 34TH INFUSION
     Route: 042
     Dates: start: 20121221
  2. REMICADE [Suspect]
     Indication: ANKYLOSING SPONDYLITIS
     Route: 042
     Dates: start: 20090219
  3. ACYCLOVIR [Concomitant]
     Route: 065
  4. FLOMAX [Concomitant]
     Route: 065
  5. AVODART [Concomitant]
     Route: 065
  6. ADALAT [Concomitant]
     Route: 065

REACTIONS (3)
  - Chest pain [Recovering/Resolving]
  - Hypoaesthesia [Unknown]
  - Blood pressure increased [Unknown]
